FAERS Safety Report 6811444-2 (Version None)
Quarter: 2010Q2

REPORT INFORMATION
  Report Type: 
  Country: None (occurrence: None)
  Receive Date: 20100629
  Receipt Date: 20100629
  Transmission Date: 20101027
  Serious: Yes (Hospitalization)
  Sender: FDA-Public Use
  Company Number: None

PATIENT
  Sex: Male
  Weight: 92.0802 kg

DRUGS (1)
  1. FEXOFENADINE [Suspect]
     Indication: MULTIPLE ALLERGIES
     Dosage: 1 PER DAY SWALLOW

REACTIONS (2)
  - FALL [None]
  - VERTIGO [None]
